FAERS Safety Report 10877170 (Version 2)
Quarter: 2015Q1

REPORT INFORMATION
  Report Type: Spontaneous
  Country: CH (occurrence: CH)
  Receive Date: 20150302
  Receipt Date: 20150302
  Transmission Date: 20150721
  Serious: Yes (Hospitalization)
  Sender: FDA-Public Use
  Company Number: CH-JNJFOC-20150216233

PATIENT
  Age: 67 Year
  Sex: Female
  Weight: 87 kg

DRUGS (14)
  1. NOVALGIN [Suspect]
     Active Substance: METAMIZOLE SODIUM
     Indication: PROCEDURAL PAIN
     Route: 048
  2. DAFALGAN [Suspect]
     Active Substance: ACETAMINOPHEN
     Indication: PROCEDURAL PAIN
     Route: 048
     Dates: start: 20140902
  3. XARELTO [Suspect]
     Active Substance: RIVAROXABAN
     Indication: THROMBOSIS PROPHYLAXIS
     Route: 048
     Dates: start: 20140909, end: 20141001
  4. TRAMADOL [Suspect]
     Active Substance: TRAMADOL
     Indication: PROCEDURAL PAIN
     Route: 048
     Dates: start: 20140902
  5. XARELTO [Suspect]
     Active Substance: RIVAROXABAN
     Indication: HIP ARTHROPLASTY
     Route: 048
     Dates: start: 20141001, end: 20141231
  6. XARELTO [Suspect]
     Active Substance: RIVAROXABAN
     Indication: HIP ARTHROPLASTY
     Route: 048
     Dates: start: 20140902, end: 20140909
  7. XARELTO [Suspect]
     Active Substance: RIVAROXABAN
     Indication: HIP ARTHROPLASTY
     Route: 048
     Dates: start: 20140909, end: 20141001
  8. XARELTO [Suspect]
     Active Substance: RIVAROXABAN
     Indication: THROMBOSIS PROPHYLAXIS
     Route: 048
     Dates: start: 20140902, end: 20140909
  9. XARELTO [Suspect]
     Active Substance: RIVAROXABAN
     Indication: HIP ARTHROPLASTY
     Route: 048
     Dates: start: 20140909, end: 20141001
  10. RODERMIL [Suspect]
     Active Substance: METRONIDAZOLE
     Indication: SLEEP DISORDER
     Route: 065
     Dates: start: 20140902
  11. ARTEOPTIC [Suspect]
     Active Substance: CARTEOLOL HYDROCHLORIDE
     Indication: OPEN ANGLE GLAUCOMA
     Route: 065
  12. XARELTO [Suspect]
     Active Substance: RIVAROXABAN
     Indication: HIP ARTHROPLASTY
     Route: 048
     Dates: start: 20141001, end: 20141231
  13. XARELTO [Suspect]
     Active Substance: RIVAROXABAN
     Indication: THROMBOSIS PROPHYLAXIS
     Route: 048
     Dates: start: 20141001, end: 20141231
  14. XARELTO [Suspect]
     Active Substance: RIVAROXABAN
     Indication: HIP ARTHROPLASTY
     Route: 048
     Dates: start: 20140902, end: 20140909

REACTIONS (1)
  - Deep vein thrombosis [Recovered/Resolved]

NARRATIVE: CASE EVENT DATE: 20140910
